FAERS Safety Report 7909695-9 (Version None)
Quarter: 2011Q4

REPORT INFORMATION
  Report Type: 
  Country: None (occurrence: None)
  Receive Date: 20111111
  Receipt Date: 20111101
  Transmission Date: 20120403
  Serious: Yes (Other)
  Sender: FDA-Public Use
  Company Number: US-GLAXOSMITHKLINE-B0761694A

PATIENT
  Age: 49 Year
  Sex: Male

DRUGS (6)
  1. TRIAMCINOLONE [Suspect]
     Indication: SACROILIITIS
  2. RITONAVIR [Suspect]
     Indication: HIV INFECTION
  3. STEROIDS [Suspect]
  4. XYLOCAINE [Concomitant]
  5. SALMETEROL [Suspect]
  6. FLUTICASONE PROPIONATE [Suspect]

REACTIONS (5)
  - WEIGHT INCREASED [None]
  - MUSCULOSKELETAL PAIN [None]
  - DRUG INTERACTION [None]
  - HYPERTENSION [None]
  - CUSHING'S SYNDROME [None]
